FAERS Safety Report 7753027-6 (Version None)
Quarter: 2011Q3

REPORT INFORMATION
  Report Type: 
  Country: None (occurrence: None)
  Receive Date: 20110915
  Receipt Date: 20110912
  Transmission Date: 20111222
  Serious: Yes (Other)
  Sender: FDA-Public Use
  Company Number: US-PFIZER INC-2011215567

PATIENT
  Sex: Female

DRUGS (1)
  1. AMIODARONE HCL [Suspect]
     Dosage: UNK

REACTIONS (4)
  - MITRAL VALVE REPLACEMENT [None]
  - RENAL DISORDER [None]
  - LIVER DISORDER [None]
  - CORNEAL DEPOSITS [None]
